FAERS Safety Report 5811186-6 (Version None)
Quarter: 2008Q3

REPORT INFORMATION
  Report Type: 
  Country: None (occurrence: None)
  Receive Date: 20080716
  Receipt Date: 20080709
  Transmission Date: 20090109
  Serious: Yes (Other)
  Sender: FDA-Public Use
  Company Number: US-AMGEN-QUU293478

PATIENT
  Sex: Female

DRUGS (5)
  1. NEUPOGEN [Suspect]
     Indication: CHEMOTHERAPY
     Route: 041
     Dates: start: 20060330, end: 20060614
  2. ABRAXANE [Suspect]
     Indication: BREAST CANCER METASTATIC
     Route: 041
     Dates: start: 20060329
  3. VINORELBINE [Suspect]
     Indication: BREAST CANCER METASTATIC
     Route: 041
     Dates: start: 20060329
  4. ARANESP [Concomitant]
     Indication: ANAEMIA OF MALIGNANT DISEASE
     Route: 058
     Dates: start: 20060426
  5. POTASSIUM CHLORIDE [Concomitant]
     Route: 048
     Dates: start: 20060531

REACTIONS (2)
  - ANAEMIA [None]
  - PNEUMONITIS [None]
